FAERS Safety Report 8602419-1 (Version None)
Quarter: 2012Q3

REPORT INFORMATION
  Report Type: 
  Country: None (occurrence: None)
  Receive Date: 20120817
  Receipt Date: 20120522
  Transmission Date: 20120928
  Serious: Yes (Hospitalization, Other)
  Sender: FDA-Public Use
  Company Number: US-MERCK-2011SP040438

PATIENT

DRUGS (15)
  1. PEG-INTRON [Suspect]
     Indication: HEPATITIS C
     Dosage: UNK UNK, UNKNOWN
     Route: 065
     Dates: start: 20080104, end: 20081003
  2. PEG-INTRON [Suspect]
     Dosage: UNK UNK, UNKNOWN
     Route: 065
     Dates: start: 20110817, end: 20120403
  3. RIBAVIRIN [Suspect]
     Dosage: UNK UNK, UNKNOWN
     Route: 065
     Dates: end: 20091007
  4. PEG-INTRON [Suspect]
     Dosage: UNK UNK, UNKNOWN
     Route: 065
     Dates: end: 20091007
  5. RIBAVIRIN [Suspect]
     Indication: HEPATITIS C
     Dosage: UNK UNK, UNKNOWN
     Route: 065
     Dates: start: 20080104, end: 20081003
  6. RIBAVIRIN [Suspect]
     Dosage: 200 MG, QD
     Route: 065
  7. RIBAVIRIN [Suspect]
     Dosage: UNK UNK, QD
     Route: 065
  8. EPOETIN ALFA [Concomitant]
     Indication: PRODUCT USED FOR UNKNOWN INDICATION
     Dosage: UPDATE (07NOV2011)
     Route: 065
  9. RIBAVIRIN [Suspect]
     Dosage: UNK UNK, QD
     Route: 065
     Dates: start: 20110817, end: 20120403
  10. PEG-INTRON [Suspect]
     Dosage: 0.4 ?G, UNKNOWN
     Route: 065
  11. VICTRELIS [Suspect]
     Indication: HEPATITIS C
     Dosage: 800 MG, TID
     Route: 048
     Dates: start: 20110914
  12. VICTRELIS [Suspect]
     Dosage: 800 MG, TID
     Route: 048
     Dates: start: 20110914
  13. PEG-INTRON [Suspect]
     Dosage: 0.3 ?G, UNKNOWN
     Route: 065
  14. RIBAVIRIN [Suspect]
     Route: 065
  15. VICTRELIS [Suspect]
     Dosage: 800 MG, TID
     Route: 048
     Dates: start: 20110914

REACTIONS (16)
  - DIABETES MELLITUS [None]
  - THERAPEUTIC PRODUCT INEFFECTIVE [None]
  - NAUSEA [None]
  - DYSPNOEA [None]
  - EPISTAXIS [None]
  - RED BLOOD CELL COUNT DECREASED [None]
  - ANAEMIA [None]
  - FATIGUE [None]
  - HYPOTENSION [None]
  - WHITE BLOOD CELL COUNT DECREASED [None]
  - ASTHENIA [None]
  - WEIGHT DECREASED [None]
  - LETHARGY [None]
  - DYSGEUSIA [None]
  - RASH [None]
  - HEADACHE [None]
